FAERS Safety Report 22599499 (Version 1)
Quarter: 2023Q2

REPORT INFORMATION
  Report Type: Spontaneous
  Country: US (occurrence: US)
  Receive Date: 20230614
  Receipt Date: 20230614
  Transmission Date: 20230721
  Serious: Yes (Hospitalization, Other)
  Sender: FDA-Public Use
  Company Number: US-002147023-NVSC2023US133097

PATIENT
  Sex: Female

DRUGS (2)
  1. VALSARTAN [Suspect]
     Active Substance: VALSARTAN
     Indication: Blood pressure abnormal
     Dosage: UNK
     Route: 065
     Dates: start: 20230330
  2. BISOPROLOL [Suspect]
     Active Substance: BISOPROLOL
     Indication: Blood pressure abnormal
     Dosage: 5 MG, QD (BY MOUTH)
     Route: 048

REACTIONS (5)
  - Hypertension [Unknown]
  - Loss of consciousness [Unknown]
  - Fall [Unknown]
  - Cardiac disorder [Unknown]
  - Hypotension [Unknown]

NARRATIVE: CASE EVENT DATE: 20230320
